FAERS Safety Report 7476263-5 (Version None)
Quarter: 2011Q2

REPORT INFORMATION
  Report Type: 
  Country: None (occurrence: None)
  Receive Date: 20110512
  Receipt Date: 20110429
  Transmission Date: 20111010
  Serious: Yes (Hospitalization)
  Sender: FDA-Public Use
  Company Number: CH-ELI_LILLY_AND_COMPANY-CH201104004684

PATIENT
  Age: 53 Year
  Sex: Female

DRUGS (10)
  1. ZOLPIDEM [Concomitant]
     Dosage: 12.5 MG, QD
  2. ANALGESICS [Concomitant]
     Indication: PAIN
  3. ANAFRANIL [Concomitant]
     Dosage: 225 MG, QD
  4. ANAFRANIL [Concomitant]
     Dosage: UNK, UNKNOWN
  5. NEXIUM [Concomitant]
     Dosage: 20 MG, QD
  6. VENLAFAXINE [Concomitant]
     Indication: DEPRESSION
     Dosage: UNK, UNKNOWN
  7. ANXIOLYTICS [Concomitant]
     Indication: ANXIETY
  8. ACETAMINOPHEN [Concomitant]
     Indication: SOMATOFORM DISORDER
  9. FLUOXETINE HYDROCHLORIDE [Suspect]
     Indication: DEPRESSION
     Dosage: 20 MG, QD
  10. VENLAFAXINE [Concomitant]
     Dosage: 225 MG, QD

REACTIONS (8)
  - OBESITY [None]
  - PAIN [None]
  - DRUG INEFFECTIVE [None]
  - DEPRESSION [None]
  - SUICIDAL IDEATION [None]
  - PSYCHIATRIC SYMPTOM [None]
  - DRUG DEPENDENCE [None]
  - MOBILITY DECREASED [None]
